FAERS Safety Report 20215869 (Version 5)
Quarter: 2022Q2

REPORT INFORMATION
  Report Type: Spontaneous
  Country: US (occurrence: US)
  Receive Date: 20211222
  Receipt Date: 20220607
  Transmission Date: 20220721
  Serious: Yes (Other)
  Sender: FDA-Public Use
  Company Number: US-AMGEN-USASP2021202287

PATIENT
  Age: 29 Year
  Sex: Female
  Weight: 120.64 kg

DRUGS (2)
  1. OTEZLA [Suspect]
     Active Substance: APREMILAST
     Indication: Psoriatic arthropathy
     Dosage: 30 MILLIGRAM, BID
     Route: 048
     Dates: start: 20211213
  2. ENBREL [Suspect]
     Active Substance: ETANERCEPT
     Indication: Product used for unknown indication
     Route: 065

REACTIONS (7)
  - Psoriatic arthropathy [Not Recovered/Not Resolved]
  - Abdominal pain upper [Not Recovered/Not Resolved]
  - Injection site reaction [Unknown]
  - Product dose omission in error [Unknown]
  - Drug ineffective [Unknown]
  - Product storage error [Unknown]
  - Underdose [Unknown]

NARRATIVE: CASE EVENT DATE: 20210901
